FAERS Safety Report 5334281-7 (Version None)
Quarter: 2007Q2

REPORT INFORMATION
  Report Type: 
  Country: None (occurrence: None)
  Receive Date: 20070525
  Receipt Date: 20070515
  Transmission Date: 20071010
  Serious: Yes (Hospitalization, Other)
  Sender: FDA-Public Use
  Company Number: PHEH2007US05799

PATIENT
  Age: 46 Year
  Sex: Female

DRUGS (3)
  1. ZELNORM [Suspect]
     Indication: CONSTIPATION
     Dosage: 6 MG, BID
     Dates: end: 20070416
  2. LITHIUM CARBONATE [Concomitant]
  3. CLONAZEPAM [Concomitant]

REACTIONS (9)
  - CARDIAC DISORDER [None]
  - CARDIAC VALVE DISEASE [None]
  - CARDIAC VALVE REPLACEMENT COMPLICATION [None]
  - CHEST PAIN [None]
  - LOSS OF CONSCIOUSNESS [None]
  - MYOCARDIAL INFARCTION [None]
  - PNEUMONIA [None]
  - ROAD TRAFFIC ACCIDENT [None]
  - STENT PLACEMENT [None]
